FAERS Safety Report 4946149-6 (Version None)
Quarter: 2006Q1

REPORT INFORMATION
  Report Type: 
  Country: None (occurrence: None)
  Receive Date: 20060118
  Receipt Date: 20050215
  Transmission Date: 20060701
  Serious: Yes (Other)
  Sender: FDA-Public Use
  Company Number: BDI-006960

PATIENT
  Age: 40 Year
  Sex: Male

DRUGS (2)
  1. PROHANCE [Suspect]
     Indication: BACK PAIN
     Dosage: 20 ML ONCE IV
     Route: 042
     Dates: start: 20050215, end: 20050215
  2. PROHANCE [Suspect]
     Indication: NUCLEAR MAGNETIC RESONANCE IMAGING
     Dosage: 20 ML ONCE IV
     Route: 042
     Dates: start: 20050215, end: 20050215

REACTIONS (4)
  - DIARRHOEA [None]
  - PAIN [None]
  - RETCHING [None]
  - VOMITING [None]
